FAERS Safety Report 5240071-6 (Version None)
Quarter: 2007Q1

REPORT INFORMATION
  Report Type: 
  Country: None (occurrence: None)
  Receive Date: 20070216
  Receipt Date: 20070205
  Transmission Date: 20070707
  Serious: Yes (Other)
  Sender: FDA-Public Use
  Company Number: US-PFIZER INC-2007010102

PATIENT
  Sex: Female
  Weight: 93 kg

DRUGS (6)
  1. CHANTIX [Suspect]
     Indication: EX-SMOKER
     Dates: start: 20070201, end: 20070204
  2. DEPAKOTE [Concomitant]
  3. SEROQUEL [Concomitant]
  4. EFFEXOR [Concomitant]
  5. DIAZEPAM [Concomitant]
  6. NAVANE [Concomitant]

REACTIONS (3)
  - DELUSION [None]
  - HALLUCINATION, AUDITORY [None]
  - PAIN IN EXTREMITY [None]
